FAERS Safety Report 12641168 (Version 1)
Quarter: 2016Q3

REPORT INFORMATION
  Report Type: Not Available
  Country: IN (occurrence: IN)
  Receive Date: 20160810
  Receipt Date: 20160810
  Transmission Date: 20161109
  Serious: Yes (Other)
  Sender: FDA-Public Use
  Company Number: IN-ANIPHARMA-2016-IN-000014

PATIENT
  Age: 61 Year
  Sex: Male
  Weight: 68 kg

DRUGS (1)
  1. GLIPIZIDE (NON-SPECIFIC) [Suspect]
     Active Substance: GLIPIZIDE
     Dosage: 10 MG DAILY
     Route: 048

REACTIONS (1)
  - Myopathy [Unknown]
